FAERS Safety Report 8521774-4 (Version None)
Quarter: 2012Q3

REPORT INFORMATION
  Report Type: 
  Country: None (occurrence: None)
  Receive Date: 20120719
  Receipt Date: 20120712
  Transmission Date: 20120928
  Serious: Yes (Hospitalization, Other)
  Sender: FDA-Public Use
  Company Number: US-009507513-1201USA02560

PATIENT

DRUGS (1)
  1. FOSAMAX [Suspect]
     Indication: OSTEOPOROSIS
     Dosage: 70 MG, QW
     Route: 048
     Dates: start: 20040101, end: 20090101

REACTIONS (16)
  - SYNCOPE [None]
  - ANGIOPATHY [None]
  - FEMUR FRACTURE [None]
  - OSTEOPENIA [None]
  - OSTEOARTHRITIS [None]
  - FALL [None]
  - HYPERTENSION [None]
  - GALLBLADDER DISORDER [None]
  - UTERINE DISORDER [None]
  - GAIT DISTURBANCE [None]
  - MUSCULOSKELETAL CHEST PAIN [None]
  - DYSLIPIDAEMIA [None]
  - ARTHRITIS [None]
  - TONSILLAR DISORDER [None]
  - VENOUS INSUFFICIENCY [None]
  - HELICOBACTER INFECTION [None]
